FAERS Safety Report 7195281-8 (Version None)
Quarter: 2010Q4

REPORT INFORMATION
  Report Type: 
  Country: None (occurrence: None)
  Receive Date: 20101223
  Receipt Date: 20100929
  Transmission Date: 20110411
  Serious: No
  Sender: FDA-Public Use
  Company Number: US-AMGEN-KDL442147

PATIENT

DRUGS (1)
  1. ENBREL [Suspect]
     Indication: JUVENILE ARTHRITIS
     Dosage: 12.5 MG, 2 TIMES/WK
     Route: 058
     Dates: start: 20100904

REACTIONS (3)
  - ABDOMINAL PAIN [None]
  - ERUCTATION [None]
  - NAUSEA [None]
